FAERS Safety Report 16196636 (Version 2)
Quarter: 2019Q2

REPORT INFORMATION
  Report Type: Spontaneous
  Country: IT (occurrence: IT)
  Receive Date: 20190415
  Receipt Date: 20190429
  Transmission Date: 20190711
  Serious: Yes (Death)
  Sender: FDA-Public Use
  Company Number: IT-009507513-1904ITA004580

PATIENT
  Age: 81 Year
  Sex: Male

DRUGS (1)
  1. KEYTRUDA [Suspect]
     Active Substance: PEMBROLIZUMAB
     Indication: METASTATIC MALIGNANT MELANOMA
     Dosage: 226 MILLIGRAM, CYCLICAL
     Route: 042
     Dates: start: 20190211, end: 20190211

REACTIONS (4)
  - Myasthenia gravis [Fatal]
  - Pneumonitis [Fatal]
  - Myositis [Fatal]
  - Myocarditis [Fatal]

NARRATIVE: CASE EVENT DATE: 20190304
